FAERS Safety Report 4571435-1 (Version None)
Quarter: 2005Q1

REPORT INFORMATION
  Report Type: 
  Country: None (occurrence: None)
  Receive Date: 20050207
  Receipt Date: 20050125
  Transmission Date: 20050727
  Serious: Yes (Congenital Anomaly)
  Sender: FDA-Public Use
  Company Number: BE-JNJFOC-20050106763

PATIENT

DRUGS (4)
  1. REMICADE [Suspect]
     Route: 042
  2. REMICADE [Suspect]
     Route: 042
  3. REMICADE [Suspect]
     Indication: UNEVALUABLE EVENT
     Route: 042
  4. IMUREL [Concomitant]
     Route: 065

REACTIONS (1)
  - CATARACT CONGENITAL [None]
